FAERS Safety Report 11605014 (Version 1)
Quarter: 2015Q4

REPORT INFORMATION
  Report Type: Spontaneous
  Country: FR (occurrence: FR)
  Receive Date: 20151007
  Receipt Date: 20151007
  Transmission Date: 20160304
  Serious: Yes (Death)
  Sender: FDA-Public Use
  Company Number: FR-PFIZER INC-2015330278

PATIENT
  Age: 71 Year
  Sex: Female

DRUGS (15)
  1. AROMASINE [Suspect]
     Active Substance: EXEMESTANE
     Indication: BREAST CANCER METASTATIC
     Dosage: UNK
     Route: 048
     Dates: start: 201505, end: 201508
  2. EUPANTOL [Concomitant]
     Active Substance: PANTOPRAZOLE SODIUM
  3. VERSATIS [Concomitant]
     Active Substance: LIDOCAINE
  4. ARTISIAL [Concomitant]
     Active Substance: CALCIUM CHLORIDE\MAGNESIUM CHLORIDE\POTASSIUM CHLORIDE\POTASSIUM PHOSPHATE, DIBASIC\POTASSIUM PHOSPHATE, MONOBASIC\SODIUM CHLORIDE
  5. CLASTOBAN [Concomitant]
     Active Substance: CLODRONIC ACID
  6. ZOPICLONE [Concomitant]
     Active Substance: ZOPICLONE
  7. HALDOL [Concomitant]
     Active Substance: HALOPERIDOL
  8. ESCITALOPRAM [Concomitant]
     Active Substance: ESCITALOPRAM OXALATE
  9. ABSTRAL [Concomitant]
     Active Substance: FENTANYL CITRATE
  10. LEXOMIL ROCHE [Concomitant]
     Active Substance: BROMAZEPAM
  11. AFINITOR [Suspect]
     Active Substance: EVEROLIMUS
     Indication: BREAST CANCER METASTATIC
     Dosage: 10 MG, 1X/DAY
     Route: 048
     Dates: start: 201505, end: 201508
  12. SKENAN [Concomitant]
     Active Substance: MORPHINE SULFATE
  13. DIFFU K [Concomitant]
     Active Substance: POTASSIUM CHLORIDE
  14. DAFALGAN [Concomitant]
     Active Substance: ACETAMINOPHEN
  15. VOGALENE [Concomitant]
     Active Substance: METOPIMAZINE

REACTIONS (1)
  - Thrombotic microangiopathy [Fatal]

NARRATIVE: CASE EVENT DATE: 20150817
